FAERS Safety Report 7057572-0 (Version None)
Quarter: 2010Q4

REPORT INFORMATION
  Report Type: 
  Country: None (occurrence: None)
  Receive Date: 20101022
  Receipt Date: 20101011
  Transmission Date: 20110411
  Serious: Yes (Other)
  Sender: FDA-Public Use
  Company Number: IT-ROCHE-732201

PATIENT
  Sex: Female

DRUGS (7)
  1. TRASTUZUMAB [Suspect]
     Dosage: LOADING DOSE
     Route: 042
  2. TRASTUZUMAB [Suspect]
     Dosage: MAINTENANCE DOSE.
     Route: 042
  3. PACLITAXEL [Concomitant]
     Dosage: 80 MG/ M2 ON DAYS 1, 8, AND 15 THEN EVERY 28 DAYS, MAXIMUM 6-8 CYCLES.
     Route: 042
  4. VINORELBINE [Concomitant]
     Dosage: 20 MG/M2 ON DAYS 1, 8 AND 15 THEN EVERY 28 DAYS, MAXIMUM 6-8 CYCLES.
     Route: 042
  5. CAPECITABINE [Concomitant]
     Dosage: 2000 MG/M2 EVERY DAY FOR 2 WEEKS PER MONTH UNTIL DISEASE PROGRESSION.
     Route: 048
  6. CYCLOPHOSPHAMIDE [Concomitant]
     Dosage: UNTIL DISEASE PROGRESSION
     Route: 048
  7. METHOTREXATE [Concomitant]
     Dosage: UNTIL DISEASE PROGRESSION
     Route: 048

REACTIONS (5)
  - ACUTE CORONARY SYNDROME [None]
  - ACUTE PULMONARY OEDEMA [None]
  - ARRHYTHMIA [None]
  - CARDIAC FAILURE [None]
  - EJECTION FRACTION DECREASED [None]
